FAERS Safety Report 9636583 (Version 5)
Quarter: 2015Q3

REPORT INFORMATION
  Report Type: Spontaneous
  Country: US (occurrence: US)
  Receive Date: 20131021
  Receipt Date: 20150707
  Transmission Date: 20151125
  Serious: Yes (Hospitalization, Disabling, Other)
  Sender: FDA-Public Use
  Company Number: US-009507513-1310USA005500

PATIENT
  Sex: Female

DRUGS (2)
  1. ALENDRONATE SODIUM. [Suspect]
     Active Substance: ALENDRONATE SODIUM
     Indication: OSTEOPOROSIS
     Dosage: 70 MG, QW
     Route: 048
     Dates: start: 200801, end: 2011
  2. FOSAMAX [Suspect]
     Active Substance: ALENDRONATE SODIUM
     Indication: OSTEOPOROSIS
     Dosage: 70 MG, QW
     Route: 048
     Dates: start: 20060124, end: 200711

REACTIONS (56)
  - Hyperkalaemia [Recovered/Resolved]
  - Blood creatinine increased [Unknown]
  - Failure to thrive [Recovering/Resolving]
  - Cholecystectomy [Unknown]
  - Hysterosalpingo-oophorectomy [Unknown]
  - Cardiomegaly [Unknown]
  - Joint effusion [Unknown]
  - Fall [Unknown]
  - Musculoskeletal discomfort [Unknown]
  - Leukocytosis [Unknown]
  - Pneumonia [Unknown]
  - Coronary artery stenosis [Unknown]
  - Asthenia [Unknown]
  - Nausea [Unknown]
  - Hypothyroidism [Unknown]
  - Joint contracture [Unknown]
  - Erythema [Unknown]
  - Drug ineffective [Unknown]
  - Gastrooesophageal reflux disease [Unknown]
  - Staphylococcal sepsis [Unknown]
  - Osteoarthritis [Unknown]
  - Acute kidney injury [Unknown]
  - Type 2 diabetes mellitus [Unknown]
  - Hypertension [Unknown]
  - Coronary arterial stent insertion [Unknown]
  - Oedema peripheral [Unknown]
  - Dehydration [Recovered/Resolved]
  - Aortic aneurysm repair [Unknown]
  - Troponin increased [Unknown]
  - Brain natriuretic peptide increased [Unknown]
  - Endometriosis [Unknown]
  - Pain [Not Recovered/Not Resolved]
  - Lung infiltration [Unknown]
  - Femoral neck fracture [Not Recovered/Not Resolved]
  - Hip fracture [Unknown]
  - Respiratory failure [Recovered/Resolved]
  - Dehydration [Unknown]
  - Atrial fibrillation [Unknown]
  - Cardiac pacemaker insertion [Unknown]
  - Osteopenia [Unknown]
  - Chronic obstructive pulmonary disease [Not Recovered/Not Resolved]
  - Intramedullary rod insertion [Unknown]
  - Hypercalcaemia [Recovered/Resolved]
  - Hypertension [Unknown]
  - Chest pain [Unknown]
  - Aortic aneurysm [Unknown]
  - Spinal osteoarthritis [Unknown]
  - Sinus node dysfunction [Unknown]
  - Sinus bradycardia [Unknown]
  - Urinary tract infection [Unknown]
  - Blood potassium decreased [Unknown]
  - Depression [Unknown]
  - Appendicectomy [Unknown]
  - Peripheral arterial occlusive disease [Unknown]
  - Cardiac murmur [Unknown]
  - Coronary artery stenosis [Recovered/Resolved]

NARRATIVE: CASE EVENT DATE: 2006
